FAERS Safety Report 7433418-3 (Version None)
Quarter: 2011Q2

REPORT INFORMATION
  Report Type: 
  Country: None (occurrence: None)
  Receive Date: 20110422
  Receipt Date: 20110408
  Transmission Date: 20111010
  Serious: Yes (Other)
  Sender: FDA-Public Use
  Company Number: BR-GENENTECH-311458

PATIENT
  Sex: Female
  Weight: 111 kg

DRUGS (13)
  1. LOSARTAN POTASSIUM [Concomitant]
     Indication: HYPERTENSION
     Dosage: 2 TABLET, QD
  2. CAPTOPRIL [Concomitant]
     Indication: PRODUCT USED FOR UNKNOWN INDICATION
     Dosage: 50 MG, UNK
  3. CITALOPRAM HYDROBROMIDE [Concomitant]
     Indication: PRODUCT USED FOR UNKNOWN INDICATION
     Dosage: 50 MG, UNK
  4. FUROSEMIDE [Concomitant]
     Indication: POLYURIA
     Dosage: 1 TABLET, QD
  5. ATENSINA [Concomitant]
     Indication: PRODUCT USED FOR UNKNOWN INDICATION
     Dosage: 3 TABLET, QD
  6. ALPRAZOLAM [Concomitant]
     Indication: ANTIDEPRESSANT THERAPY
     Dosage: 1 MG, QHS
  7. PANTOPRAZOLE SODIUM [Concomitant]
     Indication: PROPHYLAXIS
     Dosage: 40 MG, UNK
  8. BUPROPION [Concomitant]
     Indication: PRODUCT USED FOR UNKNOWN INDICATION
     Dosage: 200 MG, QHS
  9. AMLODIPINE [Concomitant]
     Indication: PRODUCT USED FOR UNKNOWN INDICATION
     Dosage: 5 MG, QHS
  10. RITUXIMAB [Suspect]
     Indication: RHEUMATOID ARTHRITIS
     Dosage: 1000 MG, UNK
     Route: 042
     Dates: start: 20081201
  11. FOLIC ACID [Concomitant]
     Indication: PRODUCT USED FOR UNKNOWN INDICATION
     Dosage: 1 TABLET, QD
  12. CYCLOSPORINE [Concomitant]
     Indication: PRODUCT USED FOR UNKNOWN INDICATION
     Dosage: 50 MG, UNK
  13. VITAMIN D [Concomitant]
     Indication: PRODUCT USED FOR UNKNOWN INDICATION
     Dosage: 25 GTT, UNK

REACTIONS (18)
  - BLOOD IMMUNOGLOBULIN G INCREASED [None]
  - PAIN [None]
  - LIVER DISORDER [None]
  - HYPERTENSION [None]
  - SWELLING [None]
  - C-REACTIVE PROTEIN INCREASED [None]
  - SKIN DISCOLOURATION [None]
  - HEPATIC PAIN [None]
  - FEELING OF DESPAIR [None]
  - ALOPECIA [None]
  - ANAEMIA [None]
  - SOMNOLENCE [None]
  - RED BLOOD CELL SEDIMENTATION RATE INCREASED [None]
  - AGITATION [None]
  - HYPERHIDROSIS [None]
  - WHITE BLOOD CELL COUNT DECREASED [None]
  - PAIN IN EXTREMITY [None]
  - AMNESIA [None]
